FAERS Safety Report 8238232-7 (Version None)
Quarter: 2012Q1

REPORT INFORMATION
  Report Type: 
  Country: None (occurrence: None)
  Receive Date: 20120327
  Receipt Date: 20120321
  Transmission Date: 20120608
  Serious: Yes (Other)
  Sender: FDA-Public Use
  Company Number: PHHY2010US17462

PATIENT
  Sex: Female

DRUGS (8)
  1. EXTAVIA [Suspect]
     Indication: MULTIPLE SCLEROSIS
     Dosage: 0.25 MG, QOD
     Route: 058
     Dates: start: 20100101, end: 20101101
  2. NEURONTIN [Concomitant]
     Dosage: 300 MG, TID
  3. GABAPENTIN [Concomitant]
     Dosage: 400 MG, TID
  4. ESTRIOL [Concomitant]
  5. GABAPENTIN [Concomitant]
     Dosage: 400 MG, TID
  6. AMITIZA [Concomitant]
     Indication: IRRITABLE BOWEL SYNDROME
     Dosage: 8 UG, QD
  7. VITAMIN TAB [Concomitant]
  8. ANTIBIOTICS [Concomitant]
     Indication: SKIN INFECTION

REACTIONS (36)
  - OPTIC NEURITIS [None]
  - PAIN IN EXTREMITY [None]
  - COGNITIVE DISORDER [None]
  - INJECTION SITE CYST [None]
  - INJECTION SITE REACTION [None]
  - INJECTION SITE ERYTHEMA [None]
  - INFLUENZA LIKE ILLNESS [None]
  - DECREASED APPETITE [None]
  - INJECTION SITE MASS [None]
  - BLINDNESS TRANSIENT [None]
  - ALTERED STATE OF CONSCIOUSNESS [None]
  - MULTIPLE SCLEROSIS RELAPSE [None]
  - HYPOAESTHESIA [None]
  - VERTIGO [None]
  - STRESS [None]
  - INSOMNIA [None]
  - HYPERHIDROSIS [None]
  - INJECTION SITE INFECTION [None]
  - INJECTION SITE PRURITUS [None]
  - CHILLS [None]
  - EYE PAIN [None]
  - MEMORY IMPAIRMENT [None]
  - INJECTION SITE SWELLING [None]
  - SKIN BURNING SENSATION [None]
  - INJECTION SITE PAIN [None]
  - PARAESTHESIA [None]
  - VISION BLURRED [None]
  - DYSARTHRIA [None]
  - INJECTION SITE HAEMATOMA [None]
  - CHEST PAIN [None]
  - PYREXIA [None]
  - URINARY HESITATION [None]
  - ABNORMAL LOSS OF WEIGHT [None]
  - TEMPERATURE INTOLERANCE [None]
  - CLUMSINESS [None]
  - FATIGUE [None]
